FAERS Safety Report 5465599-5 (Version None)
Quarter: 2007Q3

REPORT INFORMATION
  Report Type: 
  Country: None (occurrence: None)
  Receive Date: 20070924
  Receipt Date: 20070801
  Transmission Date: 20080115
  Serious: Yes (Hospitalization, Other)
  Sender: FDA-Public Use
  Company Number: US-PURDUE-USA_2007_0029209

PATIENT
  Sex: Female

DRUGS (1)
  1. OXYCONTIN [Suspect]
     Indication: ARTHRALGIA
     Dosage: UNK MG, UNK
     Route: 048
     Dates: start: 20011025, end: 20031001

REACTIONS (4)
  - DEPRESSION [None]
  - DRUG DEPENDENCE [None]
  - HOSPITALISATION [None]
  - LOSS OF CONSCIOUSNESS [None]
